FAERS Safety Report 25882333 (Version 2)
Quarter: 2025Q4

REPORT INFORMATION
  Report Type: Report from Study
  Country: US (occurrence: US)
  Receive Date: 20251006
  Receipt Date: 20251011
  Transmission Date: 20260118
  Serious: Yes (Death)
  Sender: JOHNSON AND JOHNSON
  Company Number: US-JNJFOC-20251003892

PATIENT
  Age: 56 Year
  Sex: Male

DRUGS (1)
  1. CILTACABTAGENE AUTOLEUCEL [Suspect]
     Active Substance: CILTACABTAGENE AUTOLEUCEL
     Indication: Plasma cell myeloma
     Dosage: TOTAL NUMBER OF CELLS ADMINISTERED - 4.39, TOTAL CELLS EXPONENT VALUE - 7
     Route: 065
     Dates: start: 2024, end: 2024

REACTIONS (8)
  - Hepatic failure [Fatal]
  - Respiratory failure [Fatal]
  - Multiple organ dysfunction syndrome [Fatal]
  - Haemophagocytic lymphohistiocytosis [Fatal]
  - Neoplasm malignant [Fatal]
  - Bacterial infection [Fatal]
  - Viral infection [Fatal]
  - Fungal infection [Fatal]
